FAERS Safety Report 6148527-9 (Version None)
Quarter: 2009Q2

REPORT INFORMATION
  Report Type: 
  Country: None (occurrence: None)
  Receive Date: 20090408
  Receipt Date: 20090330
  Transmission Date: 20091009
  Serious: Yes (Hospitalization)
  Sender: FDA-Public Use
  Company Number: NO-CELGENEUS-122-C5013-09021601

PATIENT
  Sex: Male
  Weight: 66 kg

DRUGS (14)
  1. CC-5013 [Suspect]
     Indication: MULTIPLE MYELOMA
     Route: 048
     Dates: start: 20081206
  2. CC-5013 [Suspect]
     Route: 048
     Dates: start: 20090210, end: 20090226
  3. DEXAMETHASONE TAB [Suspect]
     Indication: MULTIPLE MYELOMA
     Route: 048
     Dates: start: 20090209
  4. FUROSEMIDE [Concomitant]
     Route: 048
  5. DIGITOXIN TAB [Concomitant]
     Route: 048
  6. HALOPERIDOL [Concomitant]
     Indication: ANXIOLYTIC THERAPY
     Route: 048
  7. HALOPERIDOL [Concomitant]
     Indication: SEDATION
  8. OXYCONTIN [Concomitant]
     Indication: PAIN
     Route: 048
  9. PARACETAMOL [Concomitant]
     Indication: PAIN
     Route: 048
  10. DUPHALAC [Concomitant]
     Route: 048
  11. CLEXANE [Concomitant]
     Indication: ANTICOAGULANT THERAPY
     Route: 058
     Dates: start: 20081206
  12. LAXOBERAL [Concomitant]
     Route: 046
  13. NOVOLOG MIX 70/30 [Concomitant]
     Indication: DIABETES MELLITUS
     Route: 058
  14. INSULATARD [Concomitant]
     Indication: DIABETES MELLITUS
     Route: 058

REACTIONS (1)
  - PANCYTOPENIA [None]
